FAERS Safety Report 9544248 (Version 2)
Quarter: 2013Q3

REPORT INFORMATION
  Report Type: Spontaneous
  Country: JP (occurrence: JP)
  Receive Date: 20130923
  Receipt Date: 20130923
  Transmission Date: 20140515
  Serious: Yes (Death)
  Sender: FDA-Public Use
  Company Number: JP-SANOFI-AVENTIS-FABR-1003514

PATIENT
  Age: 75 Year
  Sex: Female
  Weight: 46 kg

DRUGS (12)
  1. FABRAZYME [Suspect]
     Indication: FABRY^S DISEASE
     Dosage: UNK
     Route: 042
     Dates: start: 20120107, end: 20130724
  2. CARVEDILOL [Concomitant]
     Route: 048
     Dates: start: 20120314, end: 20130803
  3. SPIRONOLACTONE [Concomitant]
     Route: 048
     Dates: start: 20120314, end: 20130803
  4. WARFARIN POTASSIUM [Concomitant]
     Route: 048
     Dates: start: 20130314, end: 20130803
  5. REBAMIPIDE [Concomitant]
     Route: 048
     Dates: start: 20130314, end: 20130803
  6. ENALAPRIL MALEATE [Concomitant]
     Route: 048
     Dates: start: 20120726, end: 20130803
  7. PIMOBENDAN [Concomitant]
     Route: 048
     Dates: start: 20121004, end: 20130803
  8. ASPIRIN [Concomitant]
     Route: 048
     Dates: start: 20130724, end: 20130803
  9. TRICHLORMETHIAZIDE [Concomitant]
     Route: 048
     Dates: start: 20120314, end: 20120731
  10. AMIODARONE HYDROCHLORIDE [Concomitant]
     Route: 048
     Dates: start: 20120314, end: 20130212
  11. HEPARINOID [Concomitant]
     Dates: start: 20121213
  12. FUROSEMIDE [Concomitant]
     Route: 048
     Dates: start: 20120314, end: 20130803

REACTIONS (1)
  - Sudden death [Fatal]
